FAERS Safety Report 5518749-6 (Version None)
Quarter: 2007Q4

REPORT INFORMATION
  Report Type: 
  Country: None (occurrence: None)
  Receive Date: 20071115
  Receipt Date: 20071031
  Transmission Date: 20080405
  Serious: Yes (Death)
  Sender: FDA-Public Use
  Company Number: AU-GENENTECH-250932

PATIENT
  Sex: Male
  Weight: 86 kg

DRUGS (6)
  1. BEVACIZUMAB [Suspect]
     Indication: COLORECTAL CANCER METASTATIC
     Dosage: 625 MG, Q3W
     Route: 042
     Dates: start: 20070323
  2. CAPECITABINE [Suspect]
     Indication: COLORECTAL CANCER METASTATIC
     Dosage: 2000 MG/M2, D1-14/Q3W
     Route: 048
     Dates: start: 20070323
  3. CAPECITABINE [Suspect]
     Dosage: 4150 MG, D1-14/Q3W
     Dates: start: 20071005
  4. MITOMYCIN C [Suspect]
     Indication: COLORECTAL CANCER METASTATIC
     Dosage: 7 MG/M2, Q6W
     Route: 042
  5. PYRIDOXINE [Concomitant]
     Indication: DRUG USE FOR UNKNOWN INDICATION
     Dates: start: 20070706
  6. LOMOTIL [Concomitant]
     Indication: DRUG USE FOR UNKNOWN INDICATION
     Dates: start: 20070920

REACTIONS (2)
  - SUBDURAL HAEMORRHAGE [None]
  - SUDDEN DEATH [None]
